FAERS Safety Report 9286302 (Version 2)
Quarter: 2013Q2

REPORT INFORMATION
  Report Type: Spontaneous
  Country: MY (occurrence: None)
  Receive Date: 20130508
  Receipt Date: 20130508
  Transmission Date: 20140414
  Serious: Yes (Other)
  Sender: FDA-Public Use
  Company Number: MY-1198114

PATIENT
  Age: 28 Day
  Sex: Male

DRUGS (1)
  1. CYCLOMYDRIL [Suspect]
     Route: 047

REACTIONS (1)
  - Apnoea [None]
